FAERS Safety Report 6886620-3 (Version None)
Quarter: 2010Q3

REPORT INFORMATION
  Report Type: 
  Country: None (occurrence: None)
  Receive Date: 20100730
  Receipt Date: 20100721
  Transmission Date: 20110219
  Serious: No
  Sender: FDA-Public Use
  Company Number: US-BIOGENIDEC-2010BI025311

PATIENT
  Age: 34 Year
  Sex: Female

DRUGS (3)
  1. TYSABRI [Suspect]
     Indication: MULTIPLE SCLEROSIS
     Route: 042
     Dates: start: 20070101, end: 20070101
  2. TYSABRI [Suspect]
     Route: 042
     Dates: start: 20080303, end: 20090122
  3. TYSABRI [Suspect]
     Route: 042
     Dates: start: 20090708

REACTIONS (4)
  - DEVICE RELATED INFECTION [None]
  - FALL [None]
  - FOOT FRACTURE [None]
  - SKIN LACERATION [None]
